FAERS Safety Report 4662985-8 (Version None)
Quarter: 2005Q2

REPORT INFORMATION
  Report Type: 
  Country: None (occurrence: None)
  Receive Date: 20050511
  Receipt Date: 20040519
  Transmission Date: 20051028
  Serious: Yes (Hospitalization)
  Sender: FDA-Public Use
  Company Number: ZONI001433

PATIENT
  Age: 43 Year
  Sex: Female

DRUGS (7)
  1. ZONEGRAN [Suspect]
     Indication: CONVULSION
     Dosage: 300 MG DAILY, 3 IN 1 D, ORAL
     Route: 048
     Dates: start: 20040101, end: 20040101
  2. KEPPRA [Suspect]
     Dosage: 1500 MG DAILY
     Dates: start: 20040101
  3. LEXAPRO [Concomitant]
  4. PHENOBARBITAL TAB [Concomitant]
  5. ABILIFY [Concomitant]
  6. VITAMIN C (ASCORBC ACID) [Concomitant]
  7. POTASSIUM ACETATE [Concomitant]

REACTIONS (2)
  - CONVULSION [None]
  - FATIGUE [None]
